FAERS Safety Report 8188721 (Version 2)
Quarter: 2014Q1

REPORT INFORMATION
  Report Type: Spontaneous
  Country: JP (occurrence: JP)
  Receive Date: 20111019
  Receipt Date: 20140305
  Transmission Date: 20141002
  Serious: Yes (Hospitalization)
  Sender: FDA-Public Use
  Company Number: JP-ASTELLAS-2011JP007345

PATIENT
  Age: 41 Year
  Sex: Female

DRUGS (4)
  1. PROGRAF [Suspect]
     Indication: ACUTE GRAFT VERSUS HOST DISEASE
     Dosage: 5 MG, UNKNOWN/D
     Route: 065
     Dates: start: 201010
  2. PROGRAF [Suspect]
     Indication: PNEUMOCYSTIS JIROVECII PNEUMONIA
     Route: 065
  3. METHYLPREDNISOLONE [Suspect]
     Indication: ACUTE GRAFT VERSUS HOST DISEASE
     Dosage: 16 MG, UNKNOWN/D
     Route: 065
     Dates: start: 201010
  4. METHYLPREDNISOLONE [Suspect]
     Indication: PNEUMOCYSTIS JIROVECII PNEUMONIA
     Route: 065

REACTIONS (1)
  - Progressive multifocal leukoencephalopathy [Recovering/Resolving]
